FAERS Safety Report 6807532-7 (Version None)
Quarter: 2010Q2

REPORT INFORMATION
  Report Type: 
  Country: None (occurrence: None)
  Receive Date: 20100629
  Receipt Date: 20081016
  Transmission Date: 20101027
  Serious: No
  Sender: FDA-Public Use
  Company Number: US-PFIZER INC-2008087706

PATIENT
  Sex: Female

DRUGS (3)
  1. ZYVOX [Suspect]
  2. LIDOCAINE [Interacting]
  3. VITAMINS [Interacting]

REACTIONS (3)
  - ASTHENIA [None]
  - DRUG INTERACTION [None]
  - MALAISE [None]
